FAERS Safety Report 14471368 (Version 1)
Quarter: 2018Q1

REPORT INFORMATION
  Report Type: Spontaneous
  Country: US (occurrence: US)
  Receive Date: 20180130
  Receipt Date: 20180130
  Transmission Date: 20180509
  Serious: Yes (Hospitalization, Other)
  Sender: FDA-Public Use
  Company Number: None

PATIENT
  Age: 33 Year
  Sex: Female

DRUGS (1)
  1. BENZONATATE. [Suspect]
     Active Substance: BENZONATATE
     Indication: COUGH
     Dosage: ?          QUANTITY:43 CAPSULE(S);?
     Route: 048
     Dates: start: 20180127, end: 20180129

REACTIONS (4)
  - Chest discomfort [None]
  - Dyspnoea [None]
  - Tachyarrhythmia [None]
  - Blood pressure increased [None]

NARRATIVE: CASE EVENT DATE: 20180129
